FAERS Safety Report 22370267 (Version 3)
Quarter: 2023Q2

REPORT INFORMATION
  Report Type: Spontaneous
  Country: US (occurrence: US)
  Receive Date: 20230526
  Receipt Date: 20230613
  Transmission Date: 20230722
  Serious: No
  Sender: FDA-Public Use
  Company Number: US-002147023-NVSC2023US120401

PATIENT
  Sex: Female
  Weight: 79.37 kg

DRUGS (1)
  1. KISQALI [Suspect]
     Active Substance: RIBOCICLIB
     Indication: Product used for unknown indication
     Dosage: 200 MG, QD (3 WEEKS)
     Route: 048
     Dates: start: 20211213

REACTIONS (2)
  - Urinary tract infection [Unknown]
  - Abdominal pain lower [Unknown]
